FAERS Safety Report 20221500 (Version 2)
Quarter: 2022Q2

REPORT INFORMATION
  Report Type: Spontaneous
  Country: DE (occurrence: DE)
  Receive Date: 20211223
  Receipt Date: 20220513
  Transmission Date: 20220721
  Serious: Yes (Other)
  Sender: FDA-Public Use
  Company Number: DE-ASTELLAS-2021US048970

PATIENT
  Age: 72 Year
  Sex: Male

DRUGS (2)
  1. XTANDI [Suspect]
     Active Substance: ENZALUTAMIDE
     Indication: Prostate cancer
     Route: 065
     Dates: start: 201910, end: 202107
  2. XTANDI [Suspect]
     Active Substance: ENZALUTAMIDE
     Route: 065
     Dates: start: 202201

REACTIONS (3)
  - Malignant neoplasm progression [Unknown]
  - Mixed adenoneuroendocrine carcinoma [Unknown]
  - Neuroendocrine tumour of the lung metastatic [Unknown]

NARRATIVE: CASE EVENT DATE: 20210301
